FAERS Safety Report 13029090 (Version 3)
Quarter: 2017Q3

REPORT INFORMATION
  Report Type: Report from Study
  Country: None (occurrence: BR)
  Receive Date: 20161215
  Receipt Date: 20170829
  Transmission Date: 20171127
  Serious: Yes (Other)
  Sender: FDA-Public Use
  Company Number: BR-ABBVIE-16P-020-1810282-00

PATIENT
  Sex: Female
  Weight: 72 kg

DRUGS (7)
  1. GONAL-F [Suspect]
     Active Substance: FOLLITROPIN
     Indication: PREGNANCY
     Route: 050
     Dates: start: 201612, end: 201706
  2. LETROZOLE. [Suspect]
     Active Substance: LETROZOLE
     Indication: PREGNANCY
     Route: 065
     Dates: start: 201706
  3. CHORIOMON [Suspect]
     Active Substance: CHORIOGONADOTROPIN ALFA
     Indication: PREGNANCY
     Route: 065
     Dates: start: 201612, end: 201706
  4. UTROGESTAN [Suspect]
     Active Substance: PROGESTERONE
     Indication: HAEMORRHAGE
     Dosage: MICRONIZED PROGESTERONE
     Route: 065
     Dates: start: 20161129
  5. CHORIOMON [Suspect]
     Active Substance: CHORIOGONADOTROPIN ALFA
     Indication: OVULATION DISORDER
  6. SYNTHROID [Suspect]
     Active Substance: LEVOTHYROXINE SODIUM
     Indication: THYROID DISORDER
     Route: 048
     Dates: start: 2015
  7. DHEA [Concomitant]
     Active Substance: PRASTERONE
     Indication: AFFECTIVE DISORDER
     Dates: start: 201707

REACTIONS (8)
  - Abortion [Unknown]
  - Maternal exposure during pregnancy [None]
  - Weight increased [Not Recovered/Not Resolved]
  - Vaginal discharge [Recovered/Resolved]
  - Maternal drugs affecting foetus [None]
  - Complication of pregnancy [Not Recovered/Not Resolved]
  - Vaginal haemorrhage [Recovered/Resolved]
  - Pregnancy [None]

NARRATIVE: CASE EVENT DATE: 2016
